FAERS Safety Report 6284421-0 (Version None)
Quarter: 2009Q3

REPORT INFORMATION
  Report Type: 
  Country: None (occurrence: None)
  Receive Date: 20090727
  Receipt Date: 20090717
  Transmission Date: 20100115
  Serious: Yes (Death, Life-Threatening)
  Sender: FDA-Public Use
  Company Number: JP-ROCHE-645475

PATIENT
  Sex: Male

DRUGS (4)
  1. DENOSINE IV [Suspect]
     Indication: CYTOMEGALOVIRUS INFECTION
     Dosage: FORM REPORTED: INFUSION.
     Route: 041
     Dates: start: 20081229, end: 20090107
  2. IMMUNE GLOBULIN INTRAVENOUS (HUMAN) [Suspect]
     Indication: CYTOMEGALOVIRUS INFECTION
     Dosage: DRUG REPORTED AS GAMMA-GLOBULIN (HUMAN NORMAL IMMUNOGLOBULIN)
     Route: 030
  3. CYCLOSPORINE [Suspect]
     Indication: DRUG USE FOR UNKNOWN INDICATION
     Dosage: DRUG: CICLOSPORIN (AGENTS AFFECTING METABOLISM N.E.C)
     Route: 065
  4. UNSPECIFIED DRUG [Suspect]
     Indication: DRUG USE FOR UNKNOWN INDICATION
     Dosage: DRUG REPORTED AS STEROID (ADRENAL HORMONE PREPARATIONS)
     Route: 065
     Dates: start: 20081205, end: 20081216

REACTIONS (2)
  - PANCYTOPENIA [None]
  - RENAL DISORDER [None]
